FAERS Safety Report 24556556 (Version 1)
Quarter: 2024Q4

REPORT INFORMATION
  Report Type: Spontaneous
  Country: US (occurrence: None)
  Receive Date: 20241027
  Receipt Date: 20241027
  Transmission Date: 20250115
  Serious: Yes (Hospitalization)
  Sender: Public
  Company Number: None

PATIENT
  Age: 63 Year
  Sex: Male
  Weight: 87.75 kg

DRUGS (6)
  1. ONDANSETRON [Suspect]
     Active Substance: ONDANSETRON
     Indication: Gastrointestinal disorder
     Dosage: OTHER QUANTITY : 1 TABLET(S);?FREQUENCY : EVERY 8 HOURS;?
     Route: 060
     Dates: start: 19960101, end: 20241027
  2. Finesteride [Concomitant]
  3. SERTRALINE [Concomitant]
  4. trazadone [Concomitant]
  5. photonix [Concomitant]
  6. TYLENOL [Concomitant]
     Active Substance: ACETAMINOPHEN

REACTIONS (4)
  - Heart rate irregular [None]
  - Heart rate decreased [None]
  - Malaise [None]
  - Balance disorder [None]

NARRATIVE: CASE EVENT DATE: 20241026
